FAERS Safety Report 7682735-0 (Version None)
Quarter: 2011Q3

REPORT INFORMATION
  Report Type: 
  Country: None (occurrence: None)
  Receive Date: 20110815
  Receipt Date: 20110802
  Transmission Date: 20111222
  Serious: Yes (Other)
  Sender: FDA-Public Use
  Company Number: FR-JNJFOC-20110505713

PATIENT
  Age: 44 Year
  Sex: Male

DRUGS (3)
  1. TANAKAN [Concomitant]
  2. REMICADE [Suspect]
     Route: 042
     Dates: start: 20110330
  3. REMICADE [Suspect]
     Indication: ANKYLOSING SPONDYLITIS
     Route: 042
     Dates: start: 20101112

REACTIONS (6)
  - VERTIGO [None]
  - CYTOLYTIC HEPATITIS [None]
  - ANTINUCLEAR ANTIBODY POSITIVE [None]
  - HYPERGAMMAGLOBULINAEMIA [None]
  - VOMITING [None]
  - NAUSEA [None]
